FAERS Safety Report 5419633-9 (Version None)
Quarter: 2007Q3

REPORT INFORMATION
  Report Type: 
  Country: None (occurrence: None)
  Receive Date: 20070816
  Receipt Date: 20070816
  Transmission Date: 20080115
  Serious: No
  Sender: FDA-Public Use
  Company Number: None

PATIENT
  Age: 60 Year
  Sex: Female
  Weight: 52.1637 kg

DRUGS (2)
  1. CLINDAMYCIN HCL [Suspect]
     Indication: ENDODONTIC PROCEDURE
     Dosage: 1 CAPSULE 3X DAILY PO
     Route: 048
     Dates: start: 20070509, end: 20070510
  2. CLINDAMYCIN HCL [Suspect]
     Indication: INFECTION PROPHYLAXIS
     Dosage: 1 CAPSULE 3X DAILY PO
     Route: 048
     Dates: start: 20070509, end: 20070510

REACTIONS (4)
  - PAIN [None]
  - PRURITUS [None]
  - RASH GENERALISED [None]
  - SWELLING [None]
